FAERS Safety Report 15459969 (Version 1)
Quarter: 2018Q4

REPORT INFORMATION
  Report Type: Report from Study
  Country: US (occurrence: US)
  Receive Date: 20181003
  Receipt Date: 20181003
  Transmission Date: 20190204
  Serious: Yes (Hospitalization)
  Sender: FDA-Public Use
  Company Number: US-SA-2018SA266040

PATIENT
  Age: 82 Year
  Sex: Male

DRUGS (1)
  1. DRONEDARONE [Suspect]
     Active Substance: DRONEDARONE
     Indication: ATRIAL FIBRILLATION
     Dosage: 400 MG, BID
     Route: 048
     Dates: start: 20151027

REACTIONS (5)
  - Cardiac failure [Unknown]
  - Renal failure [Unknown]
  - Clostridium difficile infection [Unknown]
  - Chronic obstructive pulmonary disease [Unknown]
  - Atrial fibrillation [Unknown]
